FAERS Safety Report 5646582-3 (Version None)
Quarter: 2008Q1

REPORT INFORMATION
  Report Type: 
  Country: None (occurrence: None)
  Receive Date: 20080228
  Receipt Date: 20080228
  Transmission Date: 20080703
  Serious: Yes (Hospitalization)
  Sender: FDA-Public Use
  Company Number: None

PATIENT
  Sex: Female
  Weight: 61.2356 kg

DRUGS (4)
  1. LEVAQUIN [Suspect]
     Indication: BRONCHITIS
     Dosage: PO  (THERAPY DATES: STARTED 1 WEEK BEFORE ER VISIT)
     Route: 048
  2. ZITHROMAX [Concomitant]
  3. NIASPAN [Concomitant]
  4. ASPIRIN [Concomitant]

REACTIONS (4)
  - CHEST DISCOMFORT [None]
  - HEART RATE IRREGULAR [None]
  - PALPITATIONS [None]
  - VENTRICULAR EXTRASYSTOLES [None]
